FAERS Safety Report 21087473 (Version 8)
Quarter: 2022Q3

REPORT INFORMATION
  Report Type: Spontaneous
  Country: US (occurrence: US)
  Receive Date: 20220715
  Receipt Date: 20220927
  Transmission Date: 20221026
  Serious: No
  Sender: FDA-Public Use
  Company Number: US-PFIZER INC-202200943330

PATIENT
  Age: 4 Year
  Sex: Female
  Weight: 10.66 kg

DRUGS (1)
  1. GENOTROPIN [Suspect]
     Active Substance: SOMATROPIN
     Indication: Growth hormone deficiency
     Dosage: PER DAY 6 DAYS PER WEEK, INJECTED IN BUTT
     Dates: start: 20210408

REACTIONS (7)
  - COVID-19 [Unknown]
  - Device failure [Unknown]
  - Device use issue [Unknown]
  - Poor quality device used [Unknown]
  - Device information output issue [Unknown]
  - Device breakage [Unknown]
  - Drug dose omission by device [Unknown]

NARRATIVE: CASE EVENT DATE: 20220706
